FAERS Safety Report 5953883-8 (Version None)
Quarter: 2008Q4

REPORT INFORMATION
  Report Type: 
  Country: None (occurrence: None)
  Receive Date: 20081114
  Receipt Date: 20081105
  Transmission Date: 20090506
  Serious: Yes (Other)
  Sender: FDA-Public Use
  Company Number: JP-ASTRAZENECA-2008SE05198

PATIENT
  Age: 54 Year
  Sex: Male
  Weight: 59 kg

DRUGS (7)
  1. AMIAS 4MG TABLETS [Suspect]
     Indication: RENAL FAILURE CHRONIC
     Route: 048
     Dates: start: 20080403, end: 20080721
  2. ADCAL-D3 [Concomitant]
     Indication: OSTEOPOROSIS PROPHYLAXIS
     Route: 048
     Dates: start: 20071108
  3. ALENDRONATE SODIUM [Concomitant]
     Indication: OSTEOPOROSIS PROPHYLAXIS
     Route: 048
     Dates: start: 20081002
  4. PREDNISOLONE [Concomitant]
     Indication: ASTHMA
     Route: 048
     Dates: start: 19981017
  5. RAMIPRIL [Concomitant]
     Route: 065
     Dates: start: 20071108
  6. SERETIDE [Concomitant]
     Indication: ASTHMA
     Route: 055
     Dates: start: 20020426
  7. VENTOLIN [Concomitant]
     Indication: ASTHMA
     Route: 055
     Dates: start: 19980101

REACTIONS (1)
  - ASTHMA [None]
